FAERS Safety Report 8144076-7 (Version None)
Quarter: 2012Q1

REPORT INFORMATION
  Report Type: 
  Country: None (occurrence: None)
  Receive Date: 20120217
  Receipt Date: 20120123
  Transmission Date: 20120608
  Serious: No
  Sender: FDA-Public Use
  Company Number: US-ROXANE LABORATORIES, INC.-2012-RO-00547RO

PATIENT
  Sex: Male

DRUGS (4)
  1. FOLIC ACID [Suspect]
     Indication: MOOD ALTERED
     Dosage: 1 MG
  2. LITHIUM CARBONATE [Suspect]
     Indication: MOOD ALTERED
     Dosage: 900 MG
  3. ABILIFY [Suspect]
  4. THIAMINE HCL [Suspect]
     Indication: MOOD ALTERED
     Dosage: 100 MG

REACTIONS (1)
  - SOMNOLENCE [None]
